FAERS Safety Report 17584677 (Version 1)
Quarter: 2020Q1

REPORT INFORMATION
  Report Type: Spontaneous
  Country: US (occurrence: US)
  Receive Date: 20200323
  Receipt Date: 20200323
  Transmission Date: 20200409
  Serious: No
  Sender: FDA-Public Use
  Company Number: None

PATIENT
  Age: 72 Year
  Sex: Female
  Weight: 66.68 kg

DRUGS (8)
  1. VITAMIN B12 [Concomitant]
     Active Substance: CYANOCOBALAMIN
  2. C [Concomitant]
  3. A [Concomitant]
  4. QUINOL CO Q 10 [Concomitant]
  5. LOVASTATIN. [Suspect]
     Active Substance: LOVASTATIN
     Indication: BLOOD CHOLESTEROL
     Dosage: ?          QUANTITY:2 PILLS;?
     Route: 048
     Dates: end: 20200127
  6. VITAMIN D3 [Concomitant]
     Active Substance: CHOLECALCIFEROL
  7. E [Concomitant]
  8. COLLAGEN [Concomitant]
     Active Substance: COLLAGEN

REACTIONS (5)
  - Pollakiuria [None]
  - Balance disorder [None]
  - Headache [None]
  - Urine odour abnormal [None]
  - Renal disorder [None]
